FAERS Safety Report 10929175 (Version 1)
Quarter: 2015Q1

REPORT INFORMATION
  Report Type: Spontaneous
  Country: US (occurrence: None)
  Receive Date: 20150317
  Receipt Date: 20150317
  Transmission Date: 20150721
  Serious: Yes (Hospitalization)
  Sender: FDA-Public Use
  Company Number: None

PATIENT
  Age: 49 Year
  Sex: Male
  Weight: 56.8 kg

DRUGS (13)
  1. CALCIUM AND VITAMIN D SUPPLEMENT [Concomitant]
  2. FUROSEMIDE (LASIX) [Concomitant]
  3. GABAPENTIN (NEURONTIN) [Concomitant]
  4. TACROLIMUS (GENERIC) [Concomitant]
  5. LANSOPRAZOLE (PREVACID) [Concomitant]
  6. HARVONI [Suspect]
     Active Substance: LEDIPASVIR\SOFOSBUVIR
     Indication: HEPATITIS C
     Route: 048
     Dates: start: 20150226
  7. INSULIN ASPART [Concomitant]
     Active Substance: INSULIN ASPART
  8. MULTIVITAMIN [Concomitant]
     Active Substance: VITAMINS
  9. ATOVAQUONE (MEPRON) [Concomitant]
  10. FLOMAX [Concomitant]
     Active Substance: TAMSULOSIN HYDROCHLORIDE
  11. FERROUS SULFATE [Concomitant]
     Active Substance: FERROUS SULFATE\FERROUS SULFATE, DRIED
  12. INSULIN (LANTUS) [Concomitant]
  13. MAGNESIUM OXIDE (MAG-OX 400) [Concomitant]

REACTIONS (2)
  - Hyponatraemia [None]
  - Confusional state [None]

NARRATIVE: CASE EVENT DATE: 20150302
